FAERS Safety Report 14018394 (Version 1)
Quarter: 2017Q3

REPORT INFORMATION
  Report Type: Spontaneous
  Country: US (occurrence: US)
  Receive Date: 20170927
  Receipt Date: 20170927
  Transmission Date: 20171128
  Serious: Yes (Hospitalization)
  Sender: FDA-Public Use
  Company Number: None

PATIENT
  Age: 73 Year
  Sex: Male
  Weight: 77.1 kg

DRUGS (2)
  1. ASPIRIN EC [Suspect]
     Active Substance: ASPIRIN
     Indication: THROMBOSIS PROPHYLAXIS
     Route: 048
     Dates: start: 20170912, end: 20170926
  2. FISH OIL [Suspect]
     Active Substance: FISH OIL
     Indication: THROMBOSIS PROPHYLAXIS
     Route: 048
     Dates: start: 20170912, end: 20170926

REACTIONS (1)
  - Haematuria [None]

NARRATIVE: CASE EVENT DATE: 20170927
